FAERS Safety Report 8076286-1 (Version None)
Quarter: 2012Q1

REPORT INFORMATION
  Report Type: 
  Country: None (occurrence: None)
  Receive Date: 20120127
  Receipt Date: 20120119
  Transmission Date: 20120608
  Serious: Yes (Life-Threatening)
  Sender: FDA-Public Use
  Company Number: JP-ROCHE-1026012

PATIENT
  Sex: Male
  Weight: 72 kg

DRUGS (2)
  1. XELODA [Suspect]
     Indication: METASTATIC GASTRIC CANCER
     Route: 048
     Dates: start: 20111221, end: 20111226
  2. CISPLATIN [Concomitant]
     Indication: METASTATIC GASTRIC CANCER
     Route: 041
     Dates: start: 20111221, end: 20111221

REACTIONS (1)
  - GASTRIC PERFORATION [None]
